FAERS Safety Report 5134330-5 (Version None)
Quarter: 2006Q4

REPORT INFORMATION
  Report Type: 
  Country: None (occurrence: None)
  Receive Date: 20060831
  Receipt Date: 20060721
  Transmission Date: 20070319
  Serious: No
  Sender: FDA-Public Use
  Company Number: 2006-BP-04589BP

PATIENT
  Age: 71 Year
  Sex: Male

DRUGS (9)
  1. SPIRIVA [Suspect]
     Indication: CHRONIC OBSTRUCTIVE PULMONARY DISEASE
     Dosage: 18 MCG (18 MCG,1 IN 1 D),IH
     Dates: start: 20060201
  2. ALBUTEROL [Concomitant]
  3. PREDNISONE TAB [Concomitant]
  4. FORADIL [Concomitant]
  5. PLAVIX [Concomitant]
  6. LECITHIN SOYA (GLYCINE MAX EXTRACT) [Concomitant]
  7. UNSPECIFIED NEBULIZER (ALL OTHER THERAPEUTIC PROIDUCTS) [Concomitant]
  8. BETOPTIC S (BETAXOLOL HYDROCHLORIDE) [Concomitant]
  9. TRAZODONE HCL [Concomitant]

REACTIONS (5)
  - CONSTIPATION [None]
  - DRY MOUTH [None]
  - DYSURIA [None]
  - URETHRAL STENOSIS [None]
  - URINARY HESITATION [None]
